FAERS Safety Report 6581513-3 (Version None)
Quarter: 2010Q1

REPORT INFORMATION
  Report Type: 
  Country: None (occurrence: None)
  Receive Date: 20100215
  Receipt Date: 20100212
  Transmission Date: 20100710
  Serious: Yes (Other)
  Sender: FDA-Public Use
  Company Number: D0066458A

PATIENT
  Age: 33 Year
  Sex: Male

DRUGS (2)
  1. TWINRIX [Suspect]
     Indication: PROPHYLAXIS
     Route: 065
     Dates: start: 20090801, end: 20090801
  2. MALARONE [Suspect]
     Route: 048
     Dates: start: 20090801, end: 20090801

REACTIONS (2)
  - MITOCHONDRIAL MYOPATHY [None]
  - RHABDOMYOLYSIS [None]
